FAERS Safety Report 7405432-5 (Version None)
Quarter: 2011Q2

REPORT INFORMATION
  Report Type: 
  Country: None (occurrence: None)
  Receive Date: 20110411
  Receipt Date: 20110331
  Transmission Date: 20111010
  Serious: Yes (Hospitalization)
  Sender: FDA-Public Use
  Company Number: FR-US-EMD SERONO, INC.-7037375

PATIENT
  Sex: Female

DRUGS (2)
  1. REBIF [Suspect]
     Indication: RELAPSING-REMITTING MULTIPLE SCLEROSIS
     Route: 058
     Dates: start: 20101014, end: 20101101
  2. REBIF [Suspect]
     Route: 058
     Dates: start: 20101118, end: 20101215

REACTIONS (2)
  - LIVER FUNCTION TEST ABNORMAL [None]
  - NEURALGIA [None]
